FAERS Safety Report 15465189 (Version 3)
Quarter: 2020Q2

REPORT INFORMATION
  Report Type: Spontaneous
  Country: US (occurrence: US)
  Receive Date: 20181004
  Receipt Date: 20200508
  Transmission Date: 20200713
  Serious: Yes (Hospitalization)
  Sender: FDA-Public Use
  Company Number: US-CELGENEUS-USA-20180910129

PATIENT
  Age: 73 Year
  Sex: Male
  Weight: 81.27 kg

DRUGS (9)
  1. PLACEBO [Concomitant]
     Active Substance: UNSPECIFIED INGREDIENT
     Route: 048
     Dates: start: 20180425, end: 20180425
  2. SODIUM POLYSTYRENE [Concomitant]
     Active Substance: SODIUM POLYSTYRENE SULFONATE
     Dosage: 30 GRAM
     Route: 048
     Dates: start: 20180530, end: 20180530
  3. SODIUM POLYSTYRENE [Concomitant]
     Active Substance: SODIUM POLYSTYRENE SULFONATE
     Indication: HYPERKALAEMIA
     Dosage: 30 GRAM
     Route: 048
     Dates: start: 20180524, end: 20180524
  4. AZACITIDINE. [Suspect]
     Active Substance: AZACITIDINE
     Indication: ACUTE MYELOID LEUKAEMIA
     Dosage: 75 MICROGRAM/SQ. METER
     Route: 041
     Dates: start: 20180424
  5. PLACEBO [Concomitant]
     Active Substance: UNSPECIFIED INGREDIENT
     Route: 048
     Dates: start: 20180426
  6. ALLOPURINOL. [Concomitant]
     Active Substance: ALLOPURINOL
     Indication: TUMOUR LYSIS SYNDROME
     Dosage: 300 MILLIGRAM
     Route: 048
     Dates: start: 20180504, end: 20180923
  7. PLACEBO [Concomitant]
     Active Substance: UNSPECIFIED INGREDIENT
     Indication: ACUTE MYELOID LEUKAEMIA
     Route: 048
     Dates: start: 20180424, end: 20180424
  8. CITRIC ACID-SODIUM CITRATE [Concomitant]
     Indication: NEPHROPATHY
     Dosage: 30 MILLILITER
     Route: 048
     Dates: start: 20180805, end: 20180923
  9. CALCIUM GLUCONATE. [Concomitant]
     Active Substance: CALCIUM GLUCONATE
     Indication: HYPERKALAEMIA
     Dosage: 1000 MILLIGRAM
     Route: 041
     Dates: start: 20180524, end: 20180525

REACTIONS (1)
  - Hyperkalaemia [Recovered/Resolved]

NARRATIVE: CASE EVENT DATE: 20180919
